FAERS Safety Report 5168123-X (Version None)
Quarter: 2006Q4

REPORT INFORMATION
  Report Type: 
  Country: None (occurrence: None)
  Receive Date: 20061208
  Receipt Date: 20061113
  Transmission Date: 20070319
  Serious: Yes (Hospitalization, Other)
  Sender: FDA-Public Use
  Company Number: PHFR2006GB03376

PATIENT
  Age: 54 Year
  Sex: Male

DRUGS (5)
  1. GLEEVEC [Suspect]
     Indication: CHRONIC MYELOID LEUKAEMIA
     Dosage: 400MG/DAY
     Route: 048
     Dates: start: 20001122
  2. ANTHRACYCLINES [Suspect]
  3. ESOMEPRAZOLE MAGNESIUM [Concomitant]
     Indication: DYSPEPSIA
     Dosage: 40MG/DAY
     Route: 048
  4. QUININE SULFATE [Concomitant]
     Indication: MUSCLE SPASMS
     Dosage: 300MG/DAY
     Route: 048
  5. AMITRIPTYLINE HCL [Concomitant]
     Indication: POST HERPETIC NEURALGIA
     Dosage: 50MG/DAY
     Route: 048

REACTIONS (3)
  - CARDIOMYOPATHY [None]
  - SUPRAVENTRICULAR TACHYCARDIA [None]
  - VENTRICULAR DYSFUNCTION [None]
